FAERS Safety Report 5795672-3 (Version None)
Quarter: 2008Q2

REPORT INFORMATION
  Report Type: 
  Country: None (occurrence: None)
  Receive Date: 20080630
  Receipt Date: 20080619
  Transmission Date: 20081010
  Serious: Yes (Life-Threatening)
  Sender: FDA-Public Use
  Company Number: JP-PFIZER INC-2008053948

PATIENT
  Age: 39 Year
  Sex: Male

DRUGS (1)
  1. AMLODIPINE [Suspect]

REACTIONS (2)
  - OVERDOSE [None]
  - SHOCK [None]
